FAERS Safety Report 8236473-6 (Version None)
Quarter: 2012Q1

REPORT INFORMATION
  Report Type: 
  Country: None (occurrence: None)
  Receive Date: 20120327
  Receipt Date: 20120319
  Transmission Date: 20120608
  Serious: Yes (Other)
  Sender: FDA-Public Use
  Company Number: US-US-EMD SERONO, INC.-7120692

PATIENT
  Sex: Female
  Weight: 64 kg

DRUGS (2)
  1. FOSAMAX [Concomitant]
     Indication: OSTEOPOROSIS
  2. REBIF [Suspect]
     Indication: MULTIPLE SCLEROSIS
     Route: 058
     Dates: start: 20070910

REACTIONS (7)
  - RESTLESS LEGS SYNDROME [None]
  - INSOMNIA [None]
  - HEPATIC MASS [None]
  - HEPATIC CYST [None]
  - INJECTION SITE ERYTHEMA [None]
  - RENAL CYST [None]
  - NEPHROLITHIASIS [None]
